FAERS Safety Report 6786704-4 (Version None)
Quarter: 2010Q2

REPORT INFORMATION
  Report Type: 
  Country: None (occurrence: None)
  Receive Date: 20100623
  Receipt Date: 20100611
  Transmission Date: 20101027
  Serious: Yes (Hospitalization)
  Sender: FDA-Public Use
  Company Number: US-JNJCH-2010012889

PATIENT
  Age: 9 Year
  Sex: Female
  Weight: 32.2 kg

DRUGS (2)
  1. CHILDREN'S ZYRTEC ALLERGY [Suspect]
     Indication: DRUG USE FOR UNKNOWN INDICATION
     Dosage: TEXT:1 DOSE AS DIRECTED
     Route: 048
  2. TYLENOL [Suspect]
     Indication: DRUG USE FOR UNKNOWN INDICATION
     Dosage: TEXT:UNSPECIFIED
     Route: 065

REACTIONS (3)
  - DEHYDRATION [None]
  - GASTRITIS [None]
  - PRODUCT QUALITY ISSUE [None]
